FAERS Safety Report 9344599 (Version 1)
Quarter: 2013Q2

REPORT INFORMATION
  Report Type: Spontaneous
  Country: US (occurrence: None)
  Receive Date: 20130611
  Receipt Date: 20130611
  Transmission Date: 20140414
  Serious: Yes (Hospitalization)
  Sender: FDA-Public Use
  Company Number: None

PATIENT
  Age: 66 Year
  Sex: Male
  Weight: 69.1 kg

DRUGS (2)
  1. WARFARIN [Suspect]
     Indication: AORTIC VALVE REPLACEMENT
     Route: 048
     Dates: start: 20110429
  2. ASPIRIN [Suspect]
     Route: 048
     Dates: start: 20130304, end: 20130505

REACTIONS (3)
  - Melaena [None]
  - International normalised ratio increased [None]
  - Duodenal vascular ectasia [None]
